FAERS Safety Report 8500595-2 (Version None)
Quarter: 2012Q3

REPORT INFORMATION
  Report Type: 
  Country: None (occurrence: None)
  Receive Date: 20120710
  Receipt Date: 20120709
  Transmission Date: 20120928
  Serious: Yes (Hospitalization)
  Sender: FDA-Public Use
  Company Number: ES-ROCHE-1071736

PATIENT
  Sex: Female

DRUGS (6)
  1. ACTEMRA [Suspect]
     Indication: RHEUMATOID ARTHRITIS
     Dates: start: 20120228, end: 20120404
  2. LEFLUNOMIDE [Concomitant]
     Indication: RHEUMATOID ARTHRITIS
     Dosage: 20 MG/DIA
     Route: 048
     Dates: start: 20101027
  3. DEFLAZACORT [Concomitant]
     Indication: RHEUMATOID ARTHRITIS
     Dosage: 6 MG/DIA
     Route: 048
     Dates: start: 20101027
  4. ACTEMRA [Suspect]
     Route: 042
     Dates: start: 20120327, end: 20120404
  5. METHOTREXATE [Suspect]
     Indication: RHEUMATOID ARTHRITIS
  6. PREDNISOLONE [Suspect]
     Indication: RHEUMATOID ARTHRITIS

REACTIONS (3)
  - ARTHRITIS BACTERIAL [None]
  - SYNOVIAL RUPTURE [None]
  - CELLULITIS [None]
